FAERS Safety Report 9257772 (Version 1)
Quarter: 2013Q2

REPORT INFORMATION
  Report Type: Spontaneous
  Country: US (occurrence: US)
  Receive Date: 20130426
  Receipt Date: 20130426
  Transmission Date: 20140414
  Serious: Yes (Other)
  Sender: FDA-Public Use
  Company Number: US-SANOFI-AVENTIS-2013SA041767

PATIENT
  Age: 61 Year
  Sex: Male

DRUGS (2)
  1. DIABETA [Suspect]
  2. METFORMIN [Concomitant]

REACTIONS (2)
  - Pancreatic cyst [Unknown]
  - Malaise [Unknown]
